FAERS Safety Report 23992634 (Version 1)
Quarter: 2024Q2

REPORT INFORMATION
  Report Type: Spontaneous
  Country: US (occurrence: US)
  Receive Date: 20240620
  Receipt Date: 20240620
  Transmission Date: 20240717
  Serious: No
  Sender: FDA-Public Use
  Company Number: US-TRAVERE-2024TVT00537

PATIENT
  Age: 63 Year
  Sex: Male

DRUGS (4)
  1. FILSPARI [Suspect]
     Active Substance: SPARSENTAN
     Indication: Product used for unknown indication
     Route: 048
  2. FILSPARI [Suspect]
     Active Substance: SPARSENTAN
     Route: 048
  3. TARPEYO [Suspect]
     Active Substance: BUDESONIDE
     Indication: IgA nephropathy
     Dates: start: 20230706
  4. TARPEYO [Suspect]
     Active Substance: BUDESONIDE
     Indication: Haematuria

REACTIONS (3)
  - Hypotension [Unknown]
  - Tremor [Unknown]
  - Muscle spasms [Unknown]
